FAERS Safety Report 23387261 (Version 1)
Quarter: 2024Q1

REPORT INFORMATION
  Report Type: Spontaneous
  Country: RO (occurrence: RO)
  Receive Date: 20240110
  Receipt Date: 20240110
  Transmission Date: 20240409
  Serious: Yes (Life-Threatening, Hospitalization, Other)
  Sender: FDA-Public Use
  Company Number: RO-EPICPHARMA-RO-2024EPCLIT00011

PATIENT
  Age: 33 Year
  Sex: Male

DRUGS (2)
  1. VENLAFAXINE HYDROCHLORIDE [Suspect]
     Active Substance: VENLAFAXINE HYDROCHLORIDE
     Indication: Product used for unknown indication
     Route: 048
  2. QUETIAPINE [Suspect]
     Active Substance: QUETIAPINE
     Indication: Product used for unknown indication
     Route: 048

REACTIONS (11)
  - Circulatory collapse [Recovered/Resolved]
  - Extrasystoles [Recovered/Resolved]
  - Cardiotoxicity [Recovered/Resolved]
  - Sinus bradycardia [Recovered/Resolved]
  - Nodal arrhythmia [Recovered/Resolved]
  - Coma [Recovered/Resolved]
  - Ventricular tachycardia [Recovered/Resolved]
  - Generalised tonic-clonic seizure [Recovered/Resolved]
  - Electrocardiogram QT prolonged [Recovered/Resolved]
  - Hypotension [Recovered/Resolved]
  - Intentional overdose [Unknown]
